FAERS Safety Report 20064021 (Version 1)
Quarter: 2021Q4

REPORT INFORMATION
  Report Type: Spontaneous
  Country: TW (occurrence: TW)
  Receive Date: 20211112
  Receipt Date: 20211112
  Transmission Date: 20220304
  Serious: Yes (Other)
  Sender: FDA-Public Use
  Company Number: TW-DSPHARMA-2021DSP017483

PATIENT
  Age: 52 Year
  Sex: Female

DRUGS (3)
  1. LATUDA [Suspect]
     Active Substance: LURASIDONE HYDROCHLORIDE
     Indication: Bipolar I disorder
     Dosage: 10 MG/DAY WAS INITIATED AND TITRATED TO 40 MG/DAY, MORE THAN 2 MONTHS
     Route: 048
  2. LATUDA [Suspect]
     Active Substance: LURASIDONE HYDROCHLORIDE
     Indication: Depression
  3. CARBAMAZEPINE [Concomitant]
     Active Substance: CARBAMAZEPINE
     Dosage: UNK
     Route: 065

REACTIONS (8)
  - Hypokalaemia [Unknown]
  - Depressed level of consciousness [Unknown]
  - Depressed level of consciousness [Unknown]
  - Polydipsia [Unknown]
  - Hyponatraemia [Recovered/Resolved]
  - Blood creatinine increased [Unknown]
  - Psychomotor retardation [Unknown]
  - Off label use [Unknown]
